FAERS Safety Report 19240947 (Version 1)
Quarter: 2021Q2

REPORT INFORMATION
  Report Type: Spontaneous
  Country: JP (occurrence: JP)
  Receive Date: 20210511
  Receipt Date: 20210511
  Transmission Date: 20210717
  Serious: Yes (Other)
  Sender: FDA-Public Use
  Company Number: JP-TEVA-2021-JP-002173J

PATIENT
  Sex: Male

DRUGS (4)
  1. EURODIN 2MG. TABLETS [Suspect]
     Active Substance: ESTAZOLAM
     Indication: PRODUCT USED FOR UNKNOWN INDICATION
     Route: 048
  2. CONSTAN 0.4MG.TABLETS [Suspect]
     Active Substance: ALPRAZOLAM
     Indication: AUTONOMIC NERVOUS SYSTEM IMBALANCE
     Route: 048
  3. EURODIN 1MG. TABLETS [Suspect]
     Active Substance: ESTAZOLAM
     Indication: PRODUCT USED FOR UNKNOWN INDICATION
     Route: 048
  4. LENDORMIN [Concomitant]
     Active Substance: BROTIZOLAM
     Route: 065

REACTIONS (3)
  - Product colour issue [Unknown]
  - Therapeutic product effect decreased [Unknown]
  - Arrhythmia [Unknown]
